FAERS Safety Report 14771383 (Version 3)
Quarter: 2018Q2

REPORT INFORMATION
  Report Type: Spontaneous
  Country: DE (occurrence: DE)
  Receive Date: 20180417
  Receipt Date: 20180514
  Transmission Date: 20180711
  Serious: Yes (Other)
  Sender: FDA-Public Use
  Company Number: DE-SHIRE-DE201813548

PATIENT

DRUGS (2)
  1. XAGRID [Suspect]
     Active Substance: ANAGRELIDE HYDROCHLORIDE
     Indication: PRODUCT USED FOR UNKNOWN INDICATION
     Dosage: 0.5 MG, UNK
     Route: 065
  2. XAGRID [Suspect]
     Active Substance: ANAGRELIDE HYDROCHLORIDE
     Dosage: UNK

REACTIONS (7)
  - Adverse drug reaction [Unknown]
  - Nausea [Unknown]
  - Feeling hot [Unknown]
  - Musculoskeletal discomfort [Unknown]
  - Deafness [Unknown]
  - Hypoaesthesia [Unknown]
  - Back pain [Unknown]
